FAERS Safety Report 21516639 (Version 2)
Quarter: 2022Q4

REPORT INFORMATION
  Report Type: Spontaneous
  Country: DE (occurrence: DE)
  Receive Date: 20221027
  Receipt Date: 20221122
  Transmission Date: 20230113
  Serious: Yes (Hospitalization, Other)
  Sender: FDA-Public Use
  Company Number: DE-ADRED-06962-01

PATIENT
  Age: 88 Year
  Sex: Male

DRUGS (7)
  1. ASPIRIN [Suspect]
     Active Substance: ASPIRIN
     Dosage: 100 MG, QD
  2. CLOPIDOGREL BISULFATE [Suspect]
     Active Substance: CLOPIDOGREL BISULFATE
     Dosage: 75 MG, QD
  3. LEUPROLIDE ACETATE [Suspect]
     Active Substance: LEUPROLIDE ACETATE
     Dosage: SCHEME
  4. BISOPROLOL [Concomitant]
     Active Substance: BISOPROLOL
     Dosage: 2.5 MG, BID
  5. BICALUTAMIDE [Concomitant]
     Active Substance: BICALUTAMIDE
     Dosage: 50 MG, QD
  6. ENALAPRIL [Concomitant]
     Active Substance: ENALAPRIL
     Dosage: 5 MG, BID, 1-0-1.5-0
  7. ROSUVASTATIN [Concomitant]
     Active Substance: ROSUVASTATIN
     Dosage: 10 MG, QD

REACTIONS (3)
  - Haematuria [Unknown]
  - Urogenital haemorrhage [Unknown]
  - Abdominal pain [Unknown]

NARRATIVE: CASE EVENT DATE: 20201020
